FAERS Safety Report 5368438-6 (Version None)
Quarter: 2007Q2

REPORT INFORMATION
  Report Type: 
  Country: None (occurrence: None)
  Receive Date: 20070621
  Receipt Date: 20070621
  Transmission Date: 20071010
  Serious: Yes (Other)
  Sender: FDA-Public Use
  Company Number: None

PATIENT
  Age: 48 Year
  Sex: Female

DRUGS (2)
  1. MIDAZOLAM 1MG/ML [Suspect]
     Indication: SEDATION
     Dosage: 2MG IV BOLUS
     Route: 040
  2. MIDAZOLAM 1MG/ML [Suspect]
     Indication: SEDATION
     Dosage: 2MG IV BOLUS
     Route: 040

REACTIONS (1)
  - RASH GENERALISED [None]
